FAERS Safety Report 6479592-7 (Version None)
Quarter: 2009Q4

REPORT INFORMATION
  Report Type: 
  Country: None (occurrence: None)
  Receive Date: 20091207
  Receipt Date: 20091207
  Transmission Date: 20100525
  Serious: No
  Sender: FDA-Public Use
  Company Number: None

PATIENT
  Age: 35 Year
  Sex: Female
  Weight: 81.6475 kg

DRUGS (1)
  1. ZYRTEC-D 12 HOUR [Suspect]
     Indication: NASOPHARYNGITIS
     Dates: start: 20070914, end: 20071030

REACTIONS (1)
  - ANOSMIA [None]
